FAERS Safety Report 8129618-X (Version None)
Quarter: 2012Q1

REPORT INFORMATION
  Report Type: 
  Country: None (occurrence: None)
  Receive Date: 20120210
  Receipt Date: 20120203
  Transmission Date: 20120608
  Serious: Yes (Hospitalization)
  Sender: FDA-Public Use
  Company Number: HK-GLAXOSMITHKLINE-B0778061A

PATIENT
  Sex: Female
  Weight: 37.4 kg

DRUGS (8)
  1. PROCHLORPERAZINE [Concomitant]
     Indication: VOMITING
     Dosage: 5MG THREE TIMES PER DAY
     Route: 048
     Dates: start: 20120118
  2. TRIACT [Concomitant]
     Indication: ABDOMINAL PAIN
     Dosage: 1TAB PER DAY
     Route: 048
     Dates: start: 20120118
  3. LAPATINIB [Suspect]
     Indication: BREAST CANCER METASTATIC
     Dosage: 1250MG PER DAY
     Dates: start: 20120113
  4. RABEPRAZOLE SODIUM [Concomitant]
     Indication: ABDOMINAL PAIN
     Dosage: 10MG PER DAY
     Route: 048
     Dates: start: 20120118
  5. CAPECITABINE [Suspect]
     Indication: BREAST CANCER METASTATIC
     Dosage: 1300MG TWICE PER DAY
     Dates: start: 20120113
  6. AUGMENTIN '125' [Suspect]
     Indication: LOWER RESPIRATORY TRACT INFECTION
     Dosage: 375MG THREE TIMES PER DAY
     Dates: start: 20120112, end: 20120118
  7. ALUMINUM HYDROXIDE AND MAGNESIUM TRISILICATE [Concomitant]
     Indication: DIARRHOEA
     Dosage: 3G THREE TIMES PER DAY
     Route: 048
     Dates: start: 20120119
  8. LOPERAMIDE HCL [Concomitant]
     Indication: DIARRHOEA
     Dosage: 2MG THREE TIMES PER DAY
     Route: 048

REACTIONS (1)
  - SMALL INTESTINAL OBSTRUCTION [None]
